FAERS Safety Report 18098631 (Version 11)
Quarter: 2021Q3

REPORT INFORMATION
  Report Type: Report from Study
  Country: US (occurrence: US)
  Receive Date: 20200731
  Receipt Date: 20210809
  Transmission Date: 20211014
  Serious: Yes (Hospitalization, Other)
  Sender: FDA-Public Use
  Company Number: US-ROCHE-2650965

PATIENT
  Age: 66 Year
  Sex: Female
  Weight: 104 kg

DRUGS (28)
  1. AMLODIPINE [Concomitant]
     Active Substance: AMLODIPINE BESYLATE
  2. AMOXICILLIN. [Concomitant]
     Active Substance: AMOXICILLIN
  3. ZOSYN [Concomitant]
     Active Substance: PIPERACILLIN SODIUM\TAZOBACTAM SODIUM
  4. ATEZOLIZUMAB. [Suspect]
     Active Substance: ATEZOLIZUMAB
     Indication: COLON CANCER
     Dosage: 840 MG INTRAVENOUS ON DAY 1 CYCLES 13?25 DOSE WILL BE REDUCED AT C2D1.?MOST RECENT DOSE ON 01/APR/20
     Route: 042
     Dates: start: 20200219
  5. 5?FLUOROURACIL [Suspect]
     Active Substance: FLUOROURACIL
     Dosage: ON 17/AUG/2020, RECEIVED LAST ADMINISTRATION OVER 2 HOURS ON DAY 1?FOLLOWED BY 2400 MG/M2 IV OVER 4
     Route: 042
  6. LEVETIRACETAM. [Suspect]
     Active Substance: LEVETIRACETAM
     Indication: PRODUCT USED FOR UNKNOWN INDICATION
     Route: 065
  7. BACLOFEN. [Concomitant]
     Active Substance: BACLOFEN
  8. OXALIPLATIN. [Suspect]
     Active Substance: OXALIPLATIN
     Dosage: ON 17/AUG/2020, RECEIVED LAST ADMINISTRATION
     Route: 042
  9. INSULIN [Suspect]
     Active Substance: INSULIN NOS
     Indication: PRODUCT USED FOR UNKNOWN INDICATION
     Route: 065
  10. INSULIN GLARGINE [Concomitant]
     Active Substance: INSULIN GLARGINE
  11. LEUCOVORIN CALCIUM. [Suspect]
     Active Substance: LEUCOVORIN CALCIUM
     Dosage: ON 17/AUG/2020, RECEIVED LAST ADMINISTRATION.
     Route: 042
  12. ALBUTEROL. [Concomitant]
     Active Substance: ALBUTEROL
  13. HYDROCODONE/ACETAMINOPHEN [Concomitant]
     Active Substance: ACETAMINOPHEN\HYDROCODONE
  14. MONTELUKAST [Concomitant]
     Active Substance: MONTELUKAST SODIUM
  15. LEUCOVORIN CALCIUM. [Suspect]
     Active Substance: LEUCOVORIN CALCIUM
     Indication: COLON CANCER
     Dosage: OVER 2 HOURS ON DAY 1.
     Route: 042
     Dates: start: 20200219
  16. DIPHENOXYLATE/ATROPINE [Concomitant]
     Active Substance: ATROPINE\DIPHENOXYLATE
  17. LIDOCAINE. [Concomitant]
     Active Substance: LIDOCAINE
  18. ATORVASTATIN [Concomitant]
     Active Substance: ATORVASTATIN
  19. CARVEDILOL. [Concomitant]
     Active Substance: CARVEDILOL
  20. CHOLECALCIFEROL [Concomitant]
     Active Substance: CHOLECALCIFEROL
  21. CITALOPRAM [Concomitant]
     Active Substance: CITALOPRAM HYDROBROMIDE
  22. LISINOPRIL. [Concomitant]
     Active Substance: LISINOPRIL
  23. OXALIPLATIN. [Suspect]
     Active Substance: OXALIPLATIN
     Indication: COLON CANCER
     Dosage: OVER 2 HOURS ON DAY 1.
     Route: 042
     Dates: start: 20200219
  24. 5?FLUOROURACIL [Suspect]
     Active Substance: FLUOROURACIL
     Indication: COLON CANCER
     Dosage: (BOLUS) ON DAY 1.
     Route: 042
     Dates: start: 20200219
  25. ROCEPHIN [Concomitant]
     Active Substance: CEFTRIAXONE SODIUM
  26. FERROUS SULFATE. [Concomitant]
     Active Substance: FERROUS SULFATE
  27. INSULIN ASPART [Concomitant]
     Active Substance: INSULIN ASPART
  28. MAGNESIUM [Concomitant]
     Active Substance: MAGNESIUM

REACTIONS (13)
  - Hypotension [Recovered/Resolved]
  - Hypoglycaemia [Recovered/Resolved]
  - Sepsis [Unknown]
  - Urinary tract infection [Recovered/Resolved]
  - Lethargy [Recovered/Resolved]
  - Hypoglycaemia [Recovered/Resolved]
  - Acute kidney injury [Recovered/Resolved]
  - Urinary tract infection [Recovering/Resolving]
  - Confusional state [Recovered/Resolved]
  - Encephalitis [Recovering/Resolving]
  - Diarrhoea [Recovered/Resolved]
  - Haemorrhage intracranial [Unknown]
  - Seizure [Recovered/Resolved]

NARRATIVE: CASE EVENT DATE: 20200226
